FAERS Safety Report 4540040-5 (Version None)
Quarter: 2004Q4

REPORT INFORMATION
  Report Type: 
  Country: None (occurrence: None)
  Receive Date: 20041223
  Receipt Date: 20041215
  Transmission Date: 20050328
  Serious: Yes (Other)
  Sender: FDA-Public Use
  Company Number: 2004112734

PATIENT
  Sex: Male
  Weight: 75.2971 kg

DRUGS (8)
  1. ANUSOL HC [Suspect]
     Indication: HAEMORRHOIDS
     Dosage: PEA SIZE AMOUNT BID PRN, TOPICAL
     Route: 061
  2. LISINOPRIL [Concomitant]
  3. LABETALOL HCL [Concomitant]
  4. MINOXIDIL [Concomitant]
  5. DOXAZOSIN MESYLATE [Concomitant]
  6. FUROSEMIDE [Concomitant]
  7. ATORVASTATIN (ATORVASTATIN) [Concomitant]
  8. FINASTERIDE [Concomitant]

REACTIONS (4)
  - BLOOD TEST ABNORMAL [None]
  - DIARRHOEA [None]
  - FEELING ABNORMAL [None]
  - RENAL CELL CARCINOMA STAGE UNSPECIFIED [None]
